FAERS Safety Report 5848874-1 (Version None)
Quarter: 2008Q3

REPORT INFORMATION
  Report Type: 
  Country: None (occurrence: None)
  Receive Date: 20080818
  Receipt Date: 20080807
  Transmission Date: 20090109
  Serious: Yes (Hospitalization)
  Sender: FDA-Public Use
  Company Number: DE-PFIZER INC-2008064974

PATIENT
  Sex: Female

DRUGS (6)
  1. HYDROXYZINE HYDROCHLORIDE [Suspect]
     Dosage: DAILY DOSE:80MG
     Route: 048
  2. HYDROXYZINE HYDROCHLORIDE [Suspect]
     Route: 048
     Dates: start: 20080706, end: 20080706
  3. AMFETAMINE SULFATE [Suspect]
     Route: 045
  4. DENTOCAPS-A [Suspect]
     Dosage: DAILY DOSE:600MG
  5. NEDOLON P [Suspect]
  6. ALCOHOL [Suspect]

REACTIONS (2)
  - COMA [None]
  - SUICIDE ATTEMPT [None]
